FAERS Safety Report 20673580 (Version 2)
Quarter: 2022Q2

REPORT INFORMATION
  Report Type: Spontaneous
  Country: US (occurrence: US)
  Receive Date: 20220405
  Receipt Date: 20220606
  Transmission Date: 20220721
  Serious: Yes (Other)
  Sender: FDA-Public Use
  Company Number: US-VIIV HEALTHCARE ULC-US2022AMR057385

PATIENT

DRUGS (1)
  1. RUKOBIA [Suspect]
     Active Substance: FOSTEMSAVIR TROMETHAMINE
     Indication: HIV infection
     Dosage: UNK
     Route: 048
     Dates: start: 2020

REACTIONS (3)
  - Dental caries [Not Recovered/Not Resolved]
  - Hypertension [Recovering/Resolving]
  - Blood test abnormal [Not Recovered/Not Resolved]
